FAERS Safety Report 14094893 (Version 1)
Quarter: 2017Q4

REPORT INFORMATION
  Report Type: Spontaneous
  Country: CN (occurrence: CN)
  Receive Date: 20171016
  Receipt Date: 20171016
  Transmission Date: 20180321
  Serious: Yes (Other)
  Sender: FDA-Public Use
  Company Number: CN-PFIZER INC-2017439225

PATIENT
  Age: 4 Year
  Sex: Male
  Weight: 20 kg

DRUGS (5)
  1. MEPEM [Suspect]
     Active Substance: MEROPENEM
     Indication: INFECTION
     Dosage: 0.4 G, 3X/DAY (EVERY 8 HOURS)
     Route: 041
     Dates: start: 20170718, end: 20170731
  2. SODIUM CHLORIDE. [Concomitant]
     Active Substance: SODIUM CHLORIDE
     Indication: VEHICLE SOLUTION USE
     Dosage: 100 ML, 3X/DAY
     Route: 041
     Dates: start: 20170718, end: 20170731
  3. GLUCOSE [Concomitant]
     Active Substance: DEXTROSE
     Indication: VEHICLE SOLUTION USE
     Dosage: 250 ML, 1X/DAY
     Route: 041
     Dates: start: 20170716, end: 20170723
  4. DIFLUCAN [Suspect]
     Active Substance: FLUCONAZOLE
     Indication: INFECTION
     Dosage: 0.1 G, 1X/DAY
     Route: 041
     Dates: start: 20170726, end: 20170731
  5. ZITHROMAX [Suspect]
     Active Substance: AZITHROMYCIN DIHYDRATE
     Indication: INFECTION
     Dosage: 0.2 G, 1X/DAY
     Route: 041
     Dates: start: 20170716, end: 20170723

REACTIONS (3)
  - Hepatic function abnormal [Recovering/Resolving]
  - Hepatic enzyme increased [Recovering/Resolving]
  - Drug-induced liver injury [Recovering/Resolving]

NARRATIVE: CASE EVENT DATE: 20170731
